FAERS Safety Report 7250641-1 (Version None)
Quarter: 2011Q1

REPORT INFORMATION
  Report Type: 
  Country: None (occurrence: None)
  Receive Date: 20110128
  Receipt Date: 20110120
  Transmission Date: 20110831
  Serious: Yes (Other)
  Sender: FDA-Public Use
  Company Number: DE-JNJFOC-20110105352

PATIENT
  Age: 30 Year
  Sex: Male
  Weight: 92 kg

DRUGS (6)
  1. REMICADE [Suspect]
     Indication: COLITIS ULCERATIVE
     Dosage: INFUSION PLANNED OVER 2 HOURS
     Route: 042
  2. PREDNISOLONE [Concomitant]
     Indication: PREMEDICATION
     Dosage: PRIOR TO EACH APPLICATION OF INFLIXIMAB
     Route: 042
  3. ASPIRIN [Concomitant]
     Indication: THROMBOCYTOSIS
     Route: 065
  4. OMEPRAZOLE [Concomitant]
     Dosage: PRN
     Route: 065
  5. REMICADE [Suspect]
     Route: 042
  6. DIMETINDENE [Concomitant]
     Indication: PREMEDICATION
     Dosage: PRIOR TO EACH APPLICATION OF INFLIXIMAB
     Route: 042

REACTIONS (3)
  - DYSPNOEA [None]
  - CONFUSIONAL STATE [None]
  - INFUSION RELATED REACTION [None]
